FAERS Safety Report 23089696 (Version 2)
Quarter: 2023Q4

REPORT INFORMATION
  Report Type: Spontaneous
  Country: PT (occurrence: PT)
  Receive Date: 20231020
  Receipt Date: 20231123
  Transmission Date: 20240109
  Serious: Yes (Other)
  Sender: FDA-Public Use
  Company Number: None

PATIENT
  Age: 77 Year
  Sex: Female
  Weight: 55 kg

DRUGS (6)
  1. SULFAMETHOXAZOLE\TRIMETHOPRIM [Suspect]
     Active Substance: SULFAMETHOXAZOLE\TRIMETHOPRIM
     Indication: Prophylaxis urinary tract infection
     Dosage: 1 TABLET EVERY 12 HOURS FOR 10 DAYS, FOLLOWED BY 1/2 TABLET PER DAY FOR ACTIVE INGREDIENT SULFAMETHO
     Dates: start: 20230626, end: 20230919
  2. LERCANIDIPINE [Concomitant]
     Active Substance: LERCANIDIPINE
     Indication: Hypertension
     Dosage: 10 MILLIGRAM DAILY;
  3. HYDROCHLOROTHIAZIDE\IRBESARTAN [Concomitant]
     Active Substance: HYDROCHLOROTHIAZIDE\IRBESARTAN
     Indication: Hypertension
     Dosage: 1 DOSAGE FORMS DAILY; 300 MG + 12.5 MG PER DAY FOR ACTIVE INGREDIENT IRBESARTAN THE STRENGTH IS 300
  4. SILODOSIN [Concomitant]
     Active Substance: SILODOSIN
     Indication: Neurogenic bladder
     Dosage: 4 MILLIGRAM DAILY;
  5. ATORVASTATIN [Concomitant]
     Active Substance: ATORVASTATIN
     Indication: Dyslipidaemia
     Dosage: 20 MILLIGRAM DAILY;
  6. ESOMEPRAZOLE [Concomitant]
     Active Substance: ESOMEPRAZOLE
     Indication: Gastrooesophageal reflux disease
     Dosage: 20 MILLIGRAM DAILY;

REACTIONS (1)
  - Rash maculo-papular [Recovered/Resolved]

NARRATIVE: CASE EVENT DATE: 20230626
